FAERS Safety Report 8102298-5 (Version None)
Quarter: 2012Q1

REPORT INFORMATION
  Report Type: 
  Country: None (occurrence: None)
  Receive Date: 20120201
  Receipt Date: 20120126
  Transmission Date: 20120608
  Serious: No
  Sender: FDA-Public Use
  Company Number: US-PFIZER INC-2012022312

PATIENT
  Sex: Female
  Weight: 45.805 kg

DRUGS (1)
  1. DEPO-PROVERA [Suspect]
     Indication: CONTRACEPTION
     Dosage: UNK, EVERY 3 MONTHS
     Dates: start: 20111201

REACTIONS (4)
  - ACNE [None]
  - DECREASED APPETITE [None]
  - MENORRHAGIA [None]
  - HEADACHE [None]
